FAERS Safety Report 7880253-8 (Version None)
Quarter: 2011Q4

REPORT INFORMATION
  Report Type: 
  Country: None (occurrence: None)
  Receive Date: 20111101
  Receipt Date: 20100817
  Transmission Date: 20120403
  Serious: No
  Sender: FDA-Public Use
  Company Number: US-BAYER-201030782NA

PATIENT
  Age: 74 Year
  Sex: Female

DRUGS (4)
  1. DIOVAN [Concomitant]
     Indication: HYPERTENSION
  2. AVELOX [Suspect]
     Indication: BRONCHITIS
  3. AVELOX [Suspect]
     Indication: SINUSITIS
     Dosage: 400 MG, QD
     Route: 048
     Dates: start: 20100816
  4. SYNTHROID [Concomitant]
     Indication: GOITRE

REACTIONS (3)
  - ARTHRALGIA [None]
  - DYSPEPSIA [None]
  - FUNGAL INFECTION [None]
